FAERS Safety Report 7430815-7 (Version None)
Quarter: 2011Q2

REPORT INFORMATION
  Report Type: 
  Country: None (occurrence: None)
  Receive Date: 20110421
  Receipt Date: 20110413
  Transmission Date: 20111010
  Serious: Yes (Other)
  Sender: FDA-Public Use
  Company Number: RU-US-EMD SERONO, INC.-7053429

PATIENT
  Sex: Female

DRUGS (4)
  1. GONAL-F [Suspect]
     Indication: ASSISTED FERTILISATION
     Dates: start: 20110406, end: 20110408
  2. GONAL-F [Suspect]
  3. GONAL-F [Suspect]
  4. GONAL-F [Suspect]

REACTIONS (3)
  - ABORTION SPONTANEOUS [None]
  - VIRAL INFECTION [None]
  - INFLUENZA [None]
